FAERS Safety Report 5297916-3 (Version None)
Quarter: 2007Q1

REPORT INFORMATION
  Report Type: 
  Country: None (occurrence: None)
  Receive Date: 20070201
  Receipt Date: 20061030
  Transmission Date: 20070707
  Serious: No
  Sender: FDA-Public Use
  Company Number: 2006PV024237

PATIENT
  Age: 60 Year
  Sex: Male
  Weight: 109.7705 kg

DRUGS (16)
  1. BYETTA [Suspect]
     Indication: DIABETES MELLITUS NON-INSULIN-DEPENDENT
     Dosage: SEE IMAGE
     Route: 058
     Dates: start: 20060825, end: 20060101
  2. BYETTA [Suspect]
     Indication: DIABETES MELLITUS NON-INSULIN-DEPENDENT
     Dosage: SEE IMAGE
     Route: 058
     Dates: start: 20061001
  3. GLUCOPHAGE [Concomitant]
  4. GLYBURIDE [Concomitant]
  5. AVANDIA [Concomitant]
  6. LISINOPRIL [Concomitant]
  7. NIASPAN [Concomitant]
  8. ASPIRIN [Concomitant]
  9. VYTORIN [Concomitant]
  10. ZOCOR [Concomitant]
  11. NAPROSYN [Concomitant]
  12. MULTI-VIT [Concomitant]
  13. FISH OIL [Concomitant]
  14. CINNAMON [Concomitant]
  15. PRILOSEC [Concomitant]
  16. POTASSIUM CITRATE [Concomitant]

REACTIONS (2)
  - RASH PUSTULAR [None]
  - TINEA PEDIS [None]
